FAERS Safety Report 16242316 (Version 1)
Quarter: 2019Q2

REPORT INFORMATION
  Report Type: Spontaneous
  Country: FR (occurrence: FR)
  Receive Date: 20190426
  Receipt Date: 20190426
  Transmission Date: 20190711
  Serious: Yes (Life-Threatening)
  Sender: FDA-Public Use
  Company Number: FR-ZYDUS-036006

PATIENT
  Age: 83 Year
  Sex: Female
  Weight: 55 kg

DRUGS (8)
  1. POTASSIUM [Suspect]
     Active Substance: POTASSIUM
     Indication: POISONING DELIBERATE
     Route: 048
  2. PAROXETINE. [Concomitant]
     Active Substance: PAROXETINE
  3. IRBESARTAN. [Suspect]
     Active Substance: IRBESARTAN
     Indication: POISONING DELIBERATE
     Route: 048
  4. FUROSEMIDE. [Concomitant]
     Active Substance: FUROSEMIDE
  5. RIVAROXABAN [Suspect]
     Active Substance: RIVAROXABAN
     Indication: POISONING DELIBERATE
     Route: 048
     Dates: end: 20190219
  6. OXAZEPAM. [Concomitant]
     Active Substance: OXAZEPAM
  7. AMLODIPINE [Concomitant]
     Active Substance: AMLODIPINE BESYLATE
  8. URAPIDIL [Suspect]
     Active Substance: URAPIDIL
     Indication: POISONING DELIBERATE
     Route: 048
     Dates: end: 20190219

REACTIONS (5)
  - Bradyarrhythmia [Recovered/Resolved]
  - Poisoning deliberate [Recovered/Resolved]
  - Acute kidney injury [Recovered/Resolved]
  - Hyperkalaemia [Recovered/Resolved]
  - Confusional state [Recovered/Resolved]

NARRATIVE: CASE EVENT DATE: 20190213
